FAERS Safety Report 17190006 (Version 1)
Quarter: 2019Q4

REPORT INFORMATION
  Report Type: Spontaneous
  Country: US (occurrence: US)
  Receive Date: 20191223
  Receipt Date: 20191223
  Transmission Date: 20200122
  Serious: No
  Sender: FDA-Public Use
  Company Number: US-CURIUM-201900648

PATIENT

DRUGS (2)
  1. TECHNESCAN HDP [Suspect]
     Active Substance: TECHNETIUM TC-99M OXIDRONATE
     Indication: BONE SCAN
     Route: 051
     Dates: start: 20191018, end: 20191018
  2. SODIUM PERTECHNETATE TC 99M [Suspect]
     Active Substance: TECHNETIUM TC-99M SODIUM PERTECHNETATE
     Indication: BONE SCAN
     Route: 051
     Dates: start: 20191018, end: 20191018

REACTIONS (2)
  - Poor quality product administered [Recovered/Resolved]
  - Bone scan abnormal [Recovered/Resolved]

NARRATIVE: CASE EVENT DATE: 20191018
